FAERS Safety Report 20778036 (Version 1)
Quarter: 2022Q2

REPORT INFORMATION
  Report Type: Other
  Country: FR (occurrence: FR)
  Receive Date: 20220503
  Receipt Date: 20220503
  Transmission Date: 20220721
  Serious: Yes (Hospitalization, Other)
  Sender: FDA-Public Use
  Company Number: FR-ROCHE-2963543

PATIENT
  Age: 3 Year
  Sex: Male

DRUGS (25)
  1. GANCICLOVIR [Suspect]
     Active Substance: GANCICLOVIR
     Indication: Cytomegalovirus infection reactivation
     Dosage: 70 MILLIGRAM, BID/70 MG, Q12H (5 MG/KG, Q12H)
     Route: 042
  2. GANCICLOVIR [Suspect]
     Active Substance: GANCICLOVIR
     Dosage: 140 MILLIGRAM, BID (10 MG/KG Q12H)
     Route: 042
  3. GANCICLOVIR [Suspect]
     Active Substance: GANCICLOVIR
     Route: 042
     Dates: start: 2020, end: 2020
  4. GANCICLOVIR [Suspect]
     Active Substance: GANCICLOVIR
     Route: 042
     Dates: start: 2020, end: 2020
  5. GANCICLOVIR [Suspect]
     Active Substance: GANCICLOVIR
     Dosage: 10 MILLIGRAM, BID
     Route: 042
  6. GANCICLOVIR [Suspect]
     Active Substance: GANCICLOVIR
     Dosage: UNK UNK, BID (10 MG/KG, Q12H)
     Route: 042
  7. MYCOPHENOLATE MOFETIL [Suspect]
     Active Substance: MYCOPHENOLATE MOFETIL
     Indication: Immunosuppressant drug therapy
     Route: 065
     Dates: start: 2020
  8. MYCOPHENOLATE MOFETIL [Suspect]
     Active Substance: MYCOPHENOLATE MOFETIL
     Indication: Immunosuppression
  9. COTRIMOXAZOLE [Suspect]
     Active Substance: SULFAMETHOXAZOLE\TRIMETHOPRIM
     Indication: Antibiotic prophylaxis
     Dosage: UNK (AT DAY 48)
     Route: 065
  10. SULFAMETHOXAZOLE [Suspect]
     Active Substance: SULFAMETHOXAZOLE
     Indication: Antifungal prophylaxis
     Dosage: UNK
     Route: 065
  11. CYCLOSPORINE [Suspect]
     Active Substance: CYCLOSPORINE
     Indication: Immunosuppressant drug therapy
     Route: 065
     Dates: start: 2020
  12. CYCLOSPORINE [Suspect]
     Active Substance: CYCLOSPORINE
     Indication: Immunosuppression
  13. POSACONAZOLE [Suspect]
     Active Substance: POSACONAZOLE
     Indication: Antifungal prophylaxis
     Dosage: UNK (AT DAY 26)
     Route: 065
  14. POSACONAZOLE [Suspect]
     Active Substance: POSACONAZOLE
     Indication: Pneumocystis jirovecii pneumonia
  15. RUXOLITINIB [Suspect]
     Active Substance: RUXOLITINIB
     Indication: Graft versus host disease
     Route: 065
  16. RUXOLITINIB [Suspect]
     Active Substance: RUXOLITINIB
     Indication: Acute graft versus host disease
  17. PREDNISONE [Suspect]
     Active Substance: PREDNISONE
     Indication: Graft versus host disease
     Dosage: UNK, AT DAY-21 POST TRANSPLANTATION
     Route: 065
  18. PREDNISONE [Suspect]
     Active Substance: PREDNISONE
     Indication: Acute graft versus host disease
  19. CYCLOPHOSPHAMIDE [Suspect]
     Active Substance: CYCLOPHOSPHAMIDE
     Indication: Immunosuppressant drug therapy
     Dosage: UNKNOWN
     Route: 065
     Dates: start: 2020
  20. TRIMIPRAMINE [Suspect]
     Active Substance: TRIMIPRAMINE
     Indication: Antifungal prophylaxis
     Route: 065
  21. MYCOPHENOLIC ACID [Concomitant]
     Active Substance: MYCOPHENOLIC ACID
     Indication: Immunosuppressant drug therapy
     Dates: start: 2020
  22. CYCLOPHOSPHAMIDE [Concomitant]
     Active Substance: CYCLOPHOSPHAMIDE
     Indication: Immunosuppression
     Dates: start: 2020
  23. CYCLOPHOSPHAMIDE [Concomitant]
     Active Substance: CYCLOPHOSPHAMIDE
     Indication: Immunosuppressant drug therapy
  24. COTRIMOXAZOLE [Concomitant]
     Active Substance: SULFAMETHOXAZOLE\TRIMETHOPRIM
     Indication: Pneumocystis jirovecii pneumonia
     Dosage: UNKNOWN
     Route: 065
  25. CYCLOSPORINE [Concomitant]
     Active Substance: CYCLOSPORINE
     Indication: Immunosuppression

REACTIONS (4)
  - Pancytopenia [Recovered/Resolved]
  - Accidental underdose [Unknown]
  - Off label use [Unknown]
  - Treatment failure [Unknown]
